FAERS Safety Report 5913943-4 (Version None)
Quarter: 2008Q4

REPORT INFORMATION
  Report Type: 
  Country: None (occurrence: None)
  Receive Date: 20081009
  Receipt Date: 20081003
  Transmission Date: 20090506
  Serious: Yes (Hospitalization, Disabling)
  Sender: FDA-Public Use
  Company Number: US-MERCK-0808USA01124

PATIENT
  Sex: Female

DRUGS (6)
  1. VYTORIN [Suspect]
     Indication: HYPERLIPIDAEMIA
     Route: 048
  2. PREVACID [Concomitant]
     Indication: OESOPHAGITIS
     Route: 048
     Dates: start: 19990101
  3. DEPAKOTE ER [Concomitant]
     Indication: HEADACHE
     Route: 048
     Dates: start: 19980101
  4. LASIX [Concomitant]
     Indication: FLUID RETENTION
     Route: 048
     Dates: start: 20050307
  5. VITAMIN E [Concomitant]
     Route: 048
  6. OMEGA-3 MARINE TRIGLYCERIDES [Concomitant]
     Route: 048

REACTIONS (7)
  - CHEST PAIN [None]
  - DEHYDRATION [None]
  - HEPATIC ENZYME INCREASED [None]
  - HEPATITIS [None]
  - HYPERSENSITIVITY [None]
  - NAUSEA [None]
  - VOMITING [None]
